FAERS Safety Report 7055765-X (Version None)
Quarter: 2010Q4

REPORT INFORMATION
  Report Type: 
  Country: None (occurrence: None)
  Receive Date: 20101021
  Receipt Date: 20101019
  Transmission Date: 20110411
  Serious: Yes (Death, Hospitalization, Other)
  Sender: FDA-Public Use
  Company Number: US-JNJFOC-20100306660

PATIENT
  Sex: Male
  Weight: 90.72 kg

DRUGS (16)
  1. REMICADE [Suspect]
     Indication: CROHN'S DISEASE
     Dosage: INTERMITTENT, EPISODIC INFUSIONS,
     Route: 042
  2. REMICADE [Suspect]
     Route: 042
  3. REMICADE [Suspect]
     Route: 042
  4. REMICADE [Suspect]
     Route: 042
  5. REMICADE [Suspect]
     Route: 042
  6. REMICADE [Suspect]
     Dosage: INTERMITTENT, EPISODIC INFUSIONS,
     Route: 042
  7. VITAMIN B-12 [Concomitant]
     Route: 058
  8. 6 MERCAPTOPURINE [Concomitant]
  9. CORGARD [Concomitant]
  10. FOSAMAX [Concomitant]
  11. TRILIPIX [Concomitant]
  12. NIASPAN [Concomitant]
  13. FISH OIL [Concomitant]
  14. MULTI-VITAMINS [Concomitant]
  15. CALCIUM [Concomitant]
  16. OS.CAL [Concomitant]

REACTIONS (5)
  - DERMATITIS ALLERGIC [None]
  - HEPATOSPLENIC T-CELL LYMPHOMA [None]
  - INTESTINAL OBSTRUCTION [None]
  - IRON DEFICIENCY ANAEMIA [None]
  - SPLENIC RUPTURE [None]
